FAERS Safety Report 8958266 (Version 1)
Quarter: 2012Q4

REPORT INFORMATION
  Report Type: 
  Country: IE (occurrence: IE)
  Receive Date: 20121211
  Receipt Date: 20121211
  Transmission Date: 20130627
  Serious: Yes (Other)
  Sender: FDA-Public Use
  Company Number: IE-ASTRAZENECA-2012SE92377

PATIENT
  Sex: Female
  Weight: 3.7 kg

DRUGS (3)
  1. SYNAGIS [Suspect]
     Indication: PREMATURE BABY
     Route: 030
     Dates: start: 20121002
  2. VITAMIN D [Concomitant]
  3. FERINSOL [Concomitant]

REACTIONS (3)
  - Nasopharyngitis [Recovered/Resolved with Sequelae]
  - Weight gain poor [Recovered/Resolved with Sequelae]
  - Gastrooesophageal reflux disease [Recovered/Resolved with Sequelae]
